FAERS Safety Report 5018747-5 (Version None)
Quarter: 2006Q2

REPORT INFORMATION
  Report Type: 
  Country: None (occurrence: None)
  Receive Date: 20060526
  Receipt Date: 20060511
  Transmission Date: 20061013
  Serious: Yes (Hospitalization, Disabling)
  Sender: FDA-Public Use
  Company Number: 419578

PATIENT
  Age: 24 Year
  Sex: Male
  Weight: 62.1 kg

DRUGS (12)
  1. ACCUTANE [Suspect]
     Indication: ACNE
     Dosage: ORAL
     Route: 048
     Dates: start: 19840715, end: 19841215
  2. MINOCIN (MINOCYCLINE HYDROCHLORIDE) [Concomitant]
  3. ACHROMYCIN (TETRACYCLINE HYDROCHLORIDE) [Concomitant]
  4. BENZAGEL (BENZOYL PEROXIDE) [Concomitant]
  5. TRIAMCINOLONE [Concomitant]
  6. 1 CONCOMITANT DRUG (GENERIC) [Concomitant]
  7. SUMYCIN (TETRACYCLINE HYDROCHLORIDE) [Concomitant]
  8. DAPSONE [Concomitant]
  9. ERYTHROMYCIN [Concomitant]
  10. SULFUR (SULFUR) [Concomitant]
  11. CLEOCIN (CLINDAMYCIN) [Concomitant]
  12. TOPICYCLINE (TETRACYCLINE HYDROCHLORIDE) [Concomitant]

REACTIONS (58)
  - ABDOMINAL PAIN LOWER [None]
  - ABDOMINAL WALL ABSCESS [None]
  - ABDOMINAL WALL MASS [None]
  - ABSCESS [None]
  - ANAEMIA VITAMIN B12 DEFICIENCY [None]
  - ANHEDONIA [None]
  - ANXIETY [None]
  - BACK PAIN [None]
  - BACTERIA URINE IDENTIFIED [None]
  - BASAL CELL CARCINOMA [None]
  - BLOOD GLUCOSE INCREASED [None]
  - CHRONIC FATIGUE SYNDROME [None]
  - COLITIS ULCERATIVE [None]
  - CONDITION AGGRAVATED [None]
  - CROHN'S DISEASE [None]
  - CYST [None]
  - DECREASED APPETITE [None]
  - DEPRESSION [None]
  - DIARRHOEA [None]
  - DIPLOPIA [None]
  - DISABILITY [None]
  - DRUG INEFFECTIVE [None]
  - DUODENAL ULCER [None]
  - DUODENITIS [None]
  - DYSPEPSIA [None]
  - ENTEROCUTANEOUS FISTULA [None]
  - GASTRIC ULCER [None]
  - GASTROINTESTINAL NECROSIS [None]
  - GLYCOSURIA [None]
  - INFLAMMATION [None]
  - INFLAMMATORY BOWEL DISEASE [None]
  - INJURY [None]
  - INTESTINAL OBSTRUCTION [None]
  - IRON DEFICIENCY ANAEMIA [None]
  - IRRITABLE BOWEL SYNDROME [None]
  - MELANOCYTIC NAEVUS [None]
  - MULTI-ORGAN DISORDER [None]
  - MUSCLE SPASMS [None]
  - MUSCLE STRAIN [None]
  - NECROSIS [None]
  - NEPHROLITHIASIS [None]
  - OBSTRUCTION GASTRIC [None]
  - OSTEOARTHRITIS [None]
  - PAIN [None]
  - PAIN IN EXTREMITY [None]
  - PANCREATITIS CHRONIC [None]
  - PELVIC ABSCESS [None]
  - PEPTIC ULCER [None]
  - PLEURISY [None]
  - PROTEINURIA [None]
  - PURULENT DISCHARGE [None]
  - REGURGITATION OF FOOD [None]
  - SACROILIITIS [None]
  - TRANSFUSION REACTION [None]
  - UPPER GASTROINTESTINAL HAEMORRHAGE [None]
  - URETERIC OBSTRUCTION [None]
  - WEIGHT DECREASED [None]
  - WOUND SECRETION [None]
